FAERS Safety Report 9528936 (Version 2)
Quarter: 2013Q4

REPORT INFORMATION
  Report Type: Spontaneous
  Country: ZA (occurrence: ZA)
  Receive Date: 20130917
  Receipt Date: 20131011
  Transmission Date: 20140711
  Serious: Yes (Hospitalization)
  Sender: FDA-Public Use
  Company Number: ZA-ABBVIE-13P-143-1146437-00

PATIENT
  Age: 33 Year
  Sex: Female

DRUGS (5)
  1. HUMIRA [Suspect]
     Indication: ANKYLOSING SPONDYLITIS
     Route: 058
     Dates: start: 20130816
  2. PREDNISONE [Suspect]
     Indication: ANKYLOSING SPONDYLITIS
     Dates: start: 20130818, end: 20130905
  3. METHOTREXATE [Suspect]
     Indication: ANKYLOSING SPONDYLITIS
  4. METHOTREXATE [Suspect]
     Indication: ARTHRITIS
  5. COXFLAM [Concomitant]
     Indication: ANKYLOSING SPONDYLITIS
     Dates: start: 20130601, end: 20130905

REACTIONS (9)
  - Hypophagia [Not Recovered/Not Resolved]
  - Chest pain [Recovered/Resolved]
  - Abdominal pain [Not Recovered/Not Resolved]
  - Vomiting [Not Recovered/Not Resolved]
  - Malaise [Unknown]
  - Urinary tract infection [Recovered/Resolved]
  - Headache [Not Recovered/Not Resolved]
  - Upper respiratory tract infection [Unknown]
  - Bronchopneumonia [Unknown]
